FAERS Safety Report 8365831-4 (Version None)
Quarter: 2012Q2

REPORT INFORMATION
  Report Type: 
  Country: None (occurrence: None)
  Receive Date: 20120515
  Receipt Date: 20120502
  Transmission Date: 20120825
  Serious: Yes (Hospitalization)
  Sender: FDA-Public Use
  Company Number: 2012ST000438

PATIENT
  Age: 68 Year
  Sex: Female

DRUGS (2)
  1. MATULANE [Suspect]
     Indication: LYMPHOMA
     Dosage: 200 MG;QD;PO
     Route: 048
     Dates: start: 20120227
  2. PREDNISONE [Suspect]
     Indication: PRODUCT USED FOR UNKNOWN INDICATION

REACTIONS (3)
  - DEHYDRATION [None]
  - GENERAL PHYSICAL CONDITION NORMAL [None]
  - HYPERGLYCAEMIA [None]
